FAERS Safety Report 8155163-1 (Version None)
Quarter: 2012Q1

REPORT INFORMATION
  Report Type: 
  Country: None (occurrence: None)
  Receive Date: 20120221
  Receipt Date: 20120217
  Transmission Date: 20120608
  Serious: Yes (Life-Threatening, Hospitalization, Other)
  Sender: FDA-Public Use
  Company Number: GB-ASTRAZENECA-2012SE11084

PATIENT
  Age: 79 Year
  Sex: Female
  Weight: 55 kg

DRUGS (6)
  1. OMEPRAZOLE [Suspect]
     Indication: DYSPEPSIA
     Route: 048
     Dates: start: 20111118, end: 20120110
  2. DOXAZOSIN [Concomitant]
  3. SIMVASTATIN [Concomitant]
  4. ADALAT CC [Concomitant]
  5. RAMIPRIL [Concomitant]
  6. ASPIRIN [Concomitant]

REACTIONS (4)
  - MALAISE [None]
  - TUBULOINTERSTITIAL NEPHRITIS [None]
  - RENAL FAILURE ACUTE [None]
  - FATIGUE [None]
